FAERS Safety Report 15299679 (Version 2)
Quarter: 2018Q3

REPORT INFORMATION
  Report Type: Spontaneous
  Country: TW (occurrence: TW)
  Receive Date: 20180821
  Receipt Date: 20180828
  Transmission Date: 20181010
  Serious: Yes (Death, Hospitalization)
  Sender: FDA-Public Use
  Company Number: TW-ROCHE-2170651

PATIENT
  Age: 72 Year
  Sex: Female

DRUGS (4)
  1. FOLIC ACID. [Concomitant]
     Active Substance: FOLIC ACID
     Indication: RHEUMATOID ARTHRITIS
     Route: 048
     Dates: start: 20180116, end: 20180803
  2. PREDNISOLONE. [Concomitant]
     Active Substance: PREDNISOLONE
     Indication: RHEUMATOID ARTHRITIS
     Route: 048
     Dates: start: 20180116, end: 20180803
  3. TRACETON [Concomitant]
     Indication: RHEUMATOID ARTHRITIS
     Dosage: 37.5/325 MG
     Route: 048
     Dates: start: 20180629, end: 20180803
  4. MABTHERA [Suspect]
     Active Substance: RITUXIMAB
     Indication: RHEUMATOID ARTHRITIS
     Route: 042
     Dates: start: 20180414, end: 20180526

REACTIONS (5)
  - Cardiac failure [Fatal]
  - Pulmonary oedema [Not Recovered/Not Resolved]
  - Fall [Unknown]
  - Periprosthetic fracture [Not Recovered/Not Resolved]
  - Lung infiltration [Not Recovered/Not Resolved]

NARRATIVE: CASE EVENT DATE: 20180803
